FAERS Safety Report 9288337 (Version 1)
Quarter: 2013Q2

REPORT INFORMATION
  Report Type: Spontaneous
  Country: US (occurrence: US)
  Receive Date: 20130514
  Receipt Date: 20130514
  Transmission Date: 20140414
  Serious: Yes (Other)
  Sender: FDA-Public Use
  Company Number: US-PFIZER INC-2013145127

PATIENT
  Age: 50 Year
  Sex: Male
  Weight: 70.3 kg

DRUGS (4)
  1. VIAGRA [Suspect]
     Indication: SEXUAL DYSFUNCTION
     Dosage: 100 MG, AS NEEDED
     Route: 048
     Dates: start: 201303
  2. ECHINACEA [Suspect]
     Dosage: UNK
  3. GOLDEN SEAL [Suspect]
     Dosage: UNK
  4. VITAMIN C [Suspect]
     Dosage: UNK

REACTIONS (1)
  - Haematochezia [Recovered/Resolved]
